FAERS Safety Report 7552287-4 (Version None)
Quarter: 2011Q2

REPORT INFORMATION
  Report Type: 
  Country: None (occurrence: None)
  Receive Date: 20110616
  Receipt Date: 20050131
  Transmission Date: 20111010
  Serious: Yes (Life-Threatening, Hospitalization)
  Sender: FDA-Public Use
  Company Number: PHHO2004JP18425

PATIENT
  Sex: Male
  Weight: 72 kg

DRUGS (1)
  1. DIOVAN [Suspect]
     Indication: HYPERTENSION
     Dosage: 80 MG, QD
     Route: 048
     Dates: start: 20030904, end: 20031022

REACTIONS (4)
  - CARDIO-RESPIRATORY ARREST [None]
  - CHEST PAIN [None]
  - CONGENITAL BRAIN DAMAGE [None]
  - PRINZMETAL ANGINA [None]
